FAERS Safety Report 17536716 (Version 1)
Quarter: 2020Q1

REPORT INFORMATION
  Report Type: Spontaneous
  Country: US (occurrence: US)
  Receive Date: 20200305
  Receipt Date: 20200305
  Transmission Date: 20200409
  Serious: No
  Sender: FDA-Public Use
  Company Number: None

PATIENT
  Age: 62 Year
  Sex: Female

DRUGS (1)
  1. GLATIRAMER 40MG PFS INJ (12/BOX) [Suspect]
     Active Substance: GLATIRAMER
     Route: 058

REACTIONS (5)
  - Diarrhoea [None]
  - Feeling cold [None]
  - Lip swelling [None]
  - Pruritus [None]
  - Tremor [None]

NARRATIVE: CASE EVENT DATE: 20200305
